FAERS Safety Report 14750620 (Version 1)
Quarter: 2018Q2

REPORT INFORMATION
  Report Type: Spontaneous
  Country: US (occurrence: US)
  Receive Date: 20180412
  Receipt Date: 20180412
  Transmission Date: 20180711
  Serious: No
  Sender: FDA-Public Use
  Company Number: US-PFIZER INC-2017349987

PATIENT
  Age: 71 Year
  Sex: Female
  Weight: 59 kg

DRUGS (18)
  1. GABAPENTIN. [Concomitant]
     Active Substance: GABAPENTIN
     Indication: NEURALGIA
     Dosage: 600 MG, 2X/DAY
     Route: 048
  2. PRAVASTATIN. [Concomitant]
     Active Substance: PRAVASTATIN
     Indication: BLOOD CHOLESTEROL ABNORMAL
     Dosage: 40 MG, 1X/DAY
     Route: 048
  3. CLONAZEPAM. [Concomitant]
     Active Substance: CLONAZEPAM
     Indication: SLEEP DISORDER
     Dosage: 0.5 MG, 1X/DAY (1 MG; HALF OF A TABLET BY MOUTH AT BEDTIME)
     Route: 048
  4. MOVANTIK [Concomitant]
     Active Substance: NALOXEGOL OXALATE
     Indication: CONSTIPATION
     Dosage: 25 MG, 1X/DAY
     Route: 048
     Dates: start: 201801
  5. METHOTREXATE. [Concomitant]
     Active Substance: METHOTREXATE
     Indication: RHEUMATOID ARTHRITIS
     Dosage: 20 MG, WEEKLY (2.5MG TABLET, TAKES 8 TABLETS BY MOUTH ONCE A WEEK)
     Route: 048
  6. ROPINIROLE. [Concomitant]
     Active Substance: ROPINIROLE
     Indication: PAIN IN EXTREMITY
     Dosage: 0.25 MG, 1X/DAY (1 TABLET BY MOUTH ONCE A DAY BEFORE BED)
     Route: 048
  7. LEVOTHYROXINE. [Concomitant]
     Active Substance: LEVOTHYROXINE
     Indication: HYPOTHYROIDISM
     Dosage: 200 MG, 1X/DAY
     Route: 048
     Dates: start: 2018
  8. OMEPRAZOLE. [Concomitant]
     Active Substance: OMEPRAZOLE
     Indication: GASTROOESOPHAGEAL REFLUX DISEASE
     Dosage: 40 MG, 2X/DAY
     Route: 048
  9. LINZESS [Concomitant]
     Active Substance: LINACLOTIDE
     Indication: IRRITABLE BOWEL SYNDROME
     Dosage: 290 MG, 1X/DAY
     Route: 048
     Dates: start: 2017
  10. XELJANZ XR [Suspect]
     Active Substance: TOFACITINIB CITRATE
     Indication: RHEUMATOID ARTHRITIS
     Dosage: 11 MG, 1X/DAY
     Route: 048
     Dates: start: 2017
  11. NABUMETONE. [Concomitant]
     Active Substance: NABUMETONE
     Indication: SWELLING
     Dosage: 750 MG, 2X/DAY
     Route: 048
     Dates: start: 1991
  12. AMITRIPTYLINE [Concomitant]
     Active Substance: AMITRIPTYLINE
     Indication: HEADACHE
     Dosage: 25 MG, AS NEEDED (1 TABLET BY MOUTH AS NEEDED FOR HEADACHES)
     Route: 048
  13. HYDROCODONE [Concomitant]
     Active Substance: HYDROCODONE
     Indication: SPINAL OSTEOARTHRITIS
     Dosage: 1 DF, 4X/DAY (1 TABLET BY MOUTH EVERY 6 HOURS)
     Route: 048
  14. LIOTHYRONINE [Concomitant]
     Active Substance: LIOTHYRONINE
     Indication: HYPOTHYROIDISM
     Dosage: 5 UG, 2X/DAY
     Route: 048
     Dates: start: 2018
  15. RESTASIS [Concomitant]
     Active Substance: CYCLOSPORINE
     Indication: DRY EYE
     Dosage: 2 GTT, 2X/DAY (0.5 PERCENT EMU 1 DROP IN EACH EYE TWICE DAILY)
     Route: 047
  16. XELJANZ [Suspect]
     Active Substance: TOFACITINIB CITRATE
     Indication: RHEUMATOID ARTHRITIS
     Dosage: UNK
  17. FOLIC ACID. [Concomitant]
     Active Substance: FOLIC ACID
     Indication: ORAL PAIN
     Dosage: 1 MG, 2X/DAY
     Route: 048
  18. SINGULAIR [Concomitant]
     Active Substance: MONTELUKAST SODIUM
     Indication: HYPERSENSITIVITY
     Dosage: 10 MG, 1X/DAY
     Route: 048
     Dates: start: 201803

REACTIONS (2)
  - Back injury [Not Recovered/Not Resolved]
  - Condition aggravated [Not Recovered/Not Resolved]

NARRATIVE: CASE EVENT DATE: 201803
